FAERS Safety Report 5060040-9 (Version None)
Quarter: 2006Q3

REPORT INFORMATION
  Report Type: 
  Country: None (occurrence: None)
  Receive Date: 20060719
  Receipt Date: 20060706
  Transmission Date: 20061208
  Serious: Yes (Hospitalization)
  Sender: FDA-Public Use
  Company Number: US017698

PATIENT
  Age: 15 Year
  Sex: Male

DRUGS (11)
  1. PROVIGIL [Suspect]
     Indication: ANXIETY
     Dosage: 100 MG QD ORAL
     Route: 048
     Dates: start: 20060413, end: 20060416
  2. PROVIGIL [Suspect]
     Indication: ATTENTION DEFICIT/HYPERACTIVITY DISORDER
     Dosage: 100 MG QD ORAL
     Route: 048
     Dates: start: 20060413, end: 20060416
  3. PROVIGIL [Suspect]
     Indication: ANXIETY
     Dosage: 200 MG QD ORAL
     Route: 048
     Dates: start: 20060417, end: 20060421
  4. PROVIGIL [Suspect]
     Indication: ATTENTION DEFICIT/HYPERACTIVITY DISORDER
     Dosage: 200 MG QD ORAL
     Route: 048
     Dates: start: 20060417, end: 20060421
  5. PROVIGIL [Suspect]
     Indication: ANXIETY
     Dosage: 300 MG QD ORAL
     Route: 048
     Dates: start: 20060422, end: 20060501
  6. PROVIGIL [Suspect]
     Indication: ATTENTION DEFICIT/HYPERACTIVITY DISORDER
     Dosage: 300 MG QD ORAL
     Route: 048
     Dates: start: 20060422, end: 20060501
  7. PROVIGIL [Suspect]
     Indication: ANXIETY
     Dosage: 400 MG QD ORAL
     Route: 048
     Dates: start: 20060502, end: 20060522
  8. PROVIGIL [Suspect]
     Indication: ATTENTION DEFICIT/HYPERACTIVITY DISORDER
     Dosage: 400 MG QD ORAL
     Route: 048
     Dates: start: 20060502, end: 20060522
  9. XYPREXA [Concomitant]
  10. LUVOX [Concomitant]
  11. ABILIFY [Concomitant]

REACTIONS (29)
  - ACTIVATED PARTIAL THROMBOPLASTIN TIME PROLONGED [None]
  - ACUTE PRERENAL FAILURE [None]
  - ACUTE RESPIRATORY DISTRESS SYNDROME [None]
  - AGITATION [None]
  - BLOOD FIBRINOGEN INCREASED [None]
  - BRADYCARDIA [None]
  - CAPILLARY LEAK SYNDROME [None]
  - CARDIAC MURMUR [None]
  - COAGULOPATHY [None]
  - COUGH [None]
  - DERMATITIS EXFOLIATIVE [None]
  - DRUG HYPERSENSITIVITY [None]
  - DRUG RASH WITH EOSINOPHILIA AND SYSTEMIC SYMPTOMS [None]
  - HEADACHE [None]
  - HEART RATE INCREASED [None]
  - HEPATITIS [None]
  - HYPOTENSION [None]
  - INTERNATIONAL NORMALISED RATIO INCREASED [None]
  - LIVER FUNCTION TEST ABNORMAL [None]
  - MYALGIA [None]
  - PANCREATITIS [None]
  - PETECHIAE [None]
  - PULMONARY OEDEMA [None]
  - RHINORRHOEA [None]
  - SKIN EXFOLIATION [None]
  - SWELLING FACE [None]
  - TACHYPNOEA [None]
  - VOMITING [None]
  - WEIGHT INCREASED [None]
